FAERS Safety Report 6835892-X (Version None)
Quarter: 2010Q3

REPORT INFORMATION
  Report Type: 
  Country: None (occurrence: None)
  Receive Date: 20100713
  Receipt Date: 20100629
  Transmission Date: 20110219
  Serious: Yes (Hospitalization, Other)
  Sender: FDA-Public Use
  Company Number: US-CELGENEUS-163-21880-10063166

PATIENT

DRUGS (2)
  1. REVLIMID [Suspect]
     Route: 048
  2. ALLOPURINOL [Concomitant]
     Indication: PROPHYLAXIS
     Route: 065

REACTIONS (9)
  - AUTOIMMUNE DISORDER [None]
  - CYTOKINE RELEASE SYNDROME [None]
  - DEEP VEIN THROMBOSIS [None]
  - DISEASE PROGRESSION [None]
  - FEBRILE NEUTROPENIA [None]
  - INFECTION [None]
  - LYMPHOPENIA [None]
  - NEUTROPENIA [None]
  - THROMBOCYTOPENIA [None]
